FAERS Safety Report 12891803 (Version 5)
Quarter: 2017Q1

REPORT INFORMATION
  Report Type: Spontaneous
  Country: US (occurrence: US)
  Receive Date: 20161028
  Receipt Date: 20170210
  Transmission Date: 20170428
  Serious: No
  Sender: FDA-Public Use
  Company Number: PHEH2016US028067

PATIENT
  Sex: Female
  Weight: 75.28 kg

DRUGS (2)
  1. ZOFRAN [Suspect]
     Active Substance: ONDANSETRON HYDROCHLORIDE
     Indication: VOMITING IN PREGNANCY
     Dosage: 8 MG, TID
     Route: 065
     Dates: start: 20030911, end: 20030921
  2. ZOFRAN ODT [Suspect]
     Active Substance: ONDANSETRON HYDROCHLORIDE
     Indication: PRODUCT USED FOR UNKNOWN INDICATION
     Route: 048

REACTIONS (5)
  - Vaginal discharge [Unknown]
  - Injury [Unknown]
  - Product use issue [Unknown]
  - Breast tenderness [Unknown]
  - Maternal exposure during pregnancy [Unknown]
